FAERS Safety Report 18006478 (Version 1)
Quarter: 2020Q3

REPORT INFORMATION
  Report Type: Spontaneous
  Country: US (occurrence: US)
  Receive Date: 20200710
  Receipt Date: 20200710
  Transmission Date: 20201103
  Serious: Yes (Life-Threatening)
  Sender: FDA-Public Use
  Company Number: None

PATIENT
  Age: 52 Year
  Sex: Female
  Weight: 86.4 kg

DRUGS (1)
  1. DOXYCYCLINE. [Suspect]
     Active Substance: DOXYCYCLINE
     Indication: URINARY TRACT INFECTION
     Dates: start: 20200706, end: 20200706

REACTIONS (8)
  - Skin burning sensation [None]
  - Dysphagia [None]
  - Feeling abnormal [None]
  - Ocular hyperaemia [None]
  - Throat tightness [None]
  - Fungal infection [None]
  - Oropharyngeal pain [None]
  - Eye swelling [None]

NARRATIVE: CASE EVENT DATE: 20200708
